FAERS Safety Report 5329134-4 (Version None)
Quarter: 2007Q2

REPORT INFORMATION
  Report Type: 
  Country: None (occurrence: None)
  Receive Date: 20070518
  Receipt Date: 20070508
  Transmission Date: 20071010
  Serious: Yes (Death, Hospitalization, Other)
  Sender: FDA-Public Use
  Company Number: US-PFIZER INC-2007008287

PATIENT
  Sex: Female

DRUGS (1)
  1. BEXTRA [Suspect]
     Indication: OSTEOARTHRITIS
     Route: 048
     Dates: start: 20040701, end: 20050401

REACTIONS (2)
  - ISCHAEMIC STROKE [None]
  - RESPIRATORY FAILURE [None]
